FAERS Safety Report 21560993 (Version 2)
Quarter: 2022Q4

REPORT INFORMATION
  Report Type: Spontaneous
  Country: US (occurrence: US)
  Receive Date: 20221107
  Receipt Date: 20221126
  Transmission Date: 20230113
  Serious: Yes (Life-Threatening, Hospitalization)
  Sender: FDA-Public Use
  Company Number: US-TEVA-2022-US-2822770

PATIENT
  Age: 49 Year
  Sex: Female

DRUGS (1)
  1. PREDNISONE [Suspect]
     Active Substance: PREDNISONE
     Indication: Pulmonary alveolar haemorrhage
     Dosage: 60 MILLIGRAM DAILY;
     Route: 065

REACTIONS (1)
  - Drug ineffective [Unknown]
